FAERS Safety Report 16326179 (Version 2)
Quarter: 2019Q2

REPORT INFORMATION
  Report Type: Spontaneous
  Country: US (occurrence: US)
  Receive Date: 20190517
  Receipt Date: 20190517
  Transmission Date: 20190711
  Serious: Yes (Other)
  Sender: FDA-Public Use
  Company Number: PHEH2019US020566

PATIENT
  Sex: Female

DRUGS (15)
  1. HERCEPTIN [Suspect]
     Active Substance: TRASTUZUMAB
     Dosage: UNK
     Route: 065
     Dates: start: 20150710
  2. DOXIL [Suspect]
     Active Substance: DOXORUBICIN HYDROCHLORIDE
     Indication: BREAST CANCER
     Dosage: UNK
     Dates: start: 20160219
  3. ZOMETA [Suspect]
     Active Substance: ZOLEDRONIC ACID
     Indication: BREAST CANCER
     Dosage: UNK
     Route: 065
     Dates: start: 20141031
  4. PERTUZUMAB. [Suspect]
     Active Substance: PERTUZUMAB
     Dosage: UNK
     Route: 065
     Dates: start: 20140403, end: 20140826
  5. TRASTUZUMAB. [Suspect]
     Active Substance: TRASTUZUMAB
     Indication: BREAST CANCER
     Dosage: UNK
     Route: 065
     Dates: start: 20131119, end: 20140315
  6. XELODA [Suspect]
     Active Substance: CAPECITABINE
     Indication: BREAST CANCER
     Dosage: 1500 MG, BID
     Route: 048
     Dates: start: 20141108
  7. PERTUZUMAB. [Suspect]
     Active Substance: PERTUZUMAB
     Indication: BREAST CANCER
     Dosage: UNK
     Route: 065
     Dates: start: 20131119, end: 20140315
  8. LAPATINIB [Suspect]
     Active Substance: LAPATINIB
     Dosage: 750 MG, QD
     Route: 065
     Dates: start: 20141114
  9. LAPATINIB [Suspect]
     Active Substance: LAPATINIB
     Dosage: 750 MG, QD
     Route: 065
     Dates: start: 20150619
  10. LAPATINIB [Suspect]
     Active Substance: LAPATINIB
     Indication: BREAST CANCER
     Dosage: 1250 MG, QD
     Route: 065
     Dates: start: 20141108
  11. HERCEPTIN [Suspect]
     Active Substance: TRASTUZUMAB
     Indication: BREAST CANCER
     Dosage: UNK
     Route: 065
     Dates: start: 20150619
  12. NAVELBINE [Suspect]
     Active Substance: VINORELBINE TARTRATE
     Indication: BREAST CANCER
     Dosage: UNK
     Route: 065
     Dates: start: 20160205
  13. XELODA [Suspect]
     Active Substance: CAPECITABINE
     Dosage: EVERY OTHER WEEK
     Route: 048
     Dates: start: 20141114
  14. DOCETAXEL. [Suspect]
     Active Substance: DOCETAXEL
     Indication: BREAST CANCER
     Route: 065
  15. TRASTUZUMAB. [Suspect]
     Active Substance: TRASTUZUMAB
     Dosage: UNK
     Route: 065
     Dates: start: 20140403, end: 20140826

REACTIONS (4)
  - Malignant neoplasm progression [Unknown]
  - Breast cancer [Unknown]
  - Skin toxicity [Unknown]
  - Diarrhoea [Unknown]

NARRATIVE: CASE EVENT DATE: 20150612
